FAERS Safety Report 12390867 (Version 3)
Quarter: 2016Q4

REPORT INFORMATION
  Report Type: Spontaneous
  Country: US (occurrence: US)
  Receive Date: 20160520
  Receipt Date: 20161017
  Transmission Date: 20170207
  Serious: No
  Sender: FDA-Public Use
  Company Number: US-GLAXOSMITHKLINE-US2016GSK071648

PATIENT
  Sex: Female

DRUGS (8)
  1. BUPROPION. [Suspect]
     Active Substance: BUPROPION
     Indication: POSTURAL ORTHOSTATIC TACHYCARDIA SYNDROME
     Dosage: 150 MG, 1D
  2. FLUDROCORTISON [Suspect]
     Active Substance: FLUDROCORTISONE
     Indication: POSTURAL ORTHOSTATIC TACHYCARDIA SYNDROME
     Dosage: 0.1 MG, 1D
  3. DROXIDOPA [Suspect]
     Active Substance: DROXIDOPA
     Indication: HYPERTENSION
     Dosage: 100 MG, TID
     Dates: start: 201604
  4. DROXIDOPA [Suspect]
     Active Substance: DROXIDOPA
     Dosage: 400 MG, TID
  5. DROXIDOPA [Suspect]
     Active Substance: DROXIDOPA
     Dosage: 600 MG, TID
     Dates: end: 201605
  6. DROXIDOPA [Suspect]
     Active Substance: DROXIDOPA
     Dosage: 300 MG, TID
  7. DROXIDOPA [Suspect]
     Active Substance: DROXIDOPA
     Indication: HYPOTENSION
     Dosage: 200 MG, TID
  8. DROXIDOPA [Suspect]
     Active Substance: DROXIDOPA
     Dosage: 500 MG, TID

REACTIONS (3)
  - Off label use [Unknown]
  - Abdominal pain [Recovered/Resolved]
  - Drug interaction [Unknown]
